FAERS Safety Report 9197888 (Version 16)
Quarter: 2014Q2

REPORT INFORMATION
  Report Type: Report from Study
  Country: JP (occurrence: JP)
  Receive Date: 20130328
  Receipt Date: 20140513
  Transmission Date: 20141212
  Serious: Yes (Hospitalization)
  Sender: FDA-Public Use
  Company Number: JP-UCBSA-081596

PATIENT
  Age: 70 Year
  Sex: Female
  Weight: 46.4 kg

DRUGS (11)
  1. CERTOLIZUMAB PEGOL [Suspect]
     Indication: RHEUMATOID ARTHRITIS
     Dosage: EVERY 1/2 WEEKS
     Route: 058
     Dates: start: 20110412, end: 20130227
  2. CERTOLIZUMAB PEGOL [Suspect]
     Indication: RHEUMATOID ARTHRITIS
     Dosage: EVERY 1/4 WEEKS
     Route: 058
     Dates: start: 20090904
  3. CERTOLIZUMAB PEGOL [Suspect]
     Indication: RHEUMATOID ARTHRITIS
     Dosage: EVERY 1/2 WEEKS
     Route: 058
     Dates: start: 20090220
  4. METHOTREXATE [Concomitant]
     Indication: RHEUMATOID ARTHRITIS
     Route: 048
     Dates: start: 20120616
  5. FOLIC ACID [Concomitant]
     Indication: PROPHYLAXIS
     Route: 048
     Dates: start: 20100511
  6. ATORVASTATIN CALCIUM [Concomitant]
     Indication: HYPERLIPIDAEMIA
     Route: 048
     Dates: start: 20100831
  7. OINTMENT HYDROPHILIC [Concomitant]
     Indication: ASTEATOSIS
     Route: 061
     Dates: start: 20091130
  8. HEPARINOID [Concomitant]
     Indication: ASTEATOSIS
     Route: 061
     Dates: start: 20111130
  9. WHITE PETROLATUM [Concomitant]
     Indication: ASTEATOSIS
     Route: 061
     Dates: start: 20111130
  10. DRIED FERROUS SULFATE [Concomitant]
     Indication: ANAEMIA PROPHYLAXIS
     Route: 048
     Dates: start: 20130305
  11. MAGNESIUM OXIDE [Concomitant]
     Indication: CONSTIPATION PROPHYLAXIS
     Route: 048
     Dates: start: 20130305

REACTIONS (1)
  - Ovarian cancer [Not Recovered/Not Resolved]
